FAERS Safety Report 8384806-2 (Version None)
Quarter: 2012Q2

REPORT INFORMATION
  Report Type: 
  Country: None (occurrence: None)
  Receive Date: 20120524
  Receipt Date: 20120511
  Transmission Date: 20120825
  Serious: Yes (Hospitalization)
  Sender: FDA-Public Use
  Company Number: DE-CELGENEUS-062-50794-12051470

PATIENT

DRUGS (1)
  1. VIDAZA [Suspect]
     Route: 041

REACTIONS (1)
  - MEDICATION ERROR [None]
